FAERS Safety Report 12465978 (Version 1)
Quarter: 2016Q2

REPORT INFORMATION
  Report Type: Spontaneous
  Country: US (occurrence: US)
  Receive Date: 20160614
  Receipt Date: 20160614
  Transmission Date: 20160815
  Serious: Yes (Hospitalization, Other)
  Sender: FDA-Public Use
  Company Number: US-MDT-ADR-2016-01087

PATIENT
  Age: 37 Year
  Sex: Male

DRUGS (1)
  1. COMPOUNDED BACLOFEN [Suspect]
     Active Substance: BACLOFEN
     Dosage: 1100 MCG/DAY
     Route: 037

REACTIONS (3)
  - Infusion site mass [Unknown]
  - Muscle spasticity [Unknown]
  - Pain [Unknown]
